FAERS Safety Report 20974564 (Version 1)
Quarter: 2022Q2

REPORT INFORMATION
  Report Type: Spontaneous
  Country: JP (occurrence: JP)
  Receive Date: 20220617
  Receipt Date: 20220617
  Transmission Date: 20220720
  Serious: Yes (Life-Threatening, Hospitalization)
  Sender: FDA-Public Use
  Company Number: JP-MYLANLABS-2022M1045964

PATIENT
  Age: 13 Year
  Sex: Female

DRUGS (7)
  1. ACETAMINOPHEN [Suspect]
     Active Substance: ACETAMINOPHEN
     Indication: Thyrotoxic crisis
  2. METHIMAZOLE [Suspect]
     Active Substance: METHIMAZOLE
     Indication: Thyrotoxic crisis
  3. LUGOL [Suspect]
     Active Substance: IODINE\POTASSIUM IODIDE
     Indication: Thyrotoxic crisis
  4. LANDIOLOL [Suspect]
     Active Substance: LANDIOLOL
     Indication: Thyrotoxic crisis
  5. HYDROCORTISONE [Suspect]
     Active Substance: HYDROCORTISONE
     Indication: Thyrotoxic crisis
  6. MANNITOL [Suspect]
     Active Substance: MANNITOL
     Indication: Brain oedema
     Dosage: MANNITOL HYPEROSMOLAR THERAPY
  7. MANNITOL [Suspect]
     Active Substance: MANNITOL
     Indication: Brain herniation

REACTIONS (1)
  - Drug ineffective [Unknown]
